FAERS Safety Report 9089894 (Version 2)
Quarter: 2013Q3

REPORT INFORMATION
  Report Type: Spontaneous
  Country: BR (occurrence: BR)
  Receive Date: 20130201
  Receipt Date: 20130918
  Transmission Date: 20140515
  Serious: No
  Sender: FDA-Public Use
  Company Number: BR-009507513-1208BRA003185

PATIENT
  Sex: Female
  Weight: 56 kg

DRUGS (5)
  1. PEG-INTRON [Suspect]
     Indication: CHRONIC HEPATITIS C
     Dosage: 80 MICROGRAM, QW
     Route: 058
     Dates: start: 2005, end: 201305
  2. VICTRELIS [Suspect]
     Indication: CHRONIC HEPATITIS C
     Dosage: 2400 MG, QD
     Route: 048
     Dates: start: 201210, end: 201210
  3. RIBAVIRIN [Concomitant]
     Indication: CHRONIC HEPATITIS C
     Dosage: UNK UNK, Q12H
     Route: 048
     Dates: start: 2005, end: 201305
  4. FOLIC ACID [Concomitant]
     Dosage: UNK
  5. CYANOCOBALAMIN [Concomitant]
     Dosage: UNK

REACTIONS (17)
  - Coordination abnormal [Recovered/Resolved]
  - Hepatic neoplasm [Unknown]
  - Fall [Recovered/Resolved]
  - Hypertension [Recovered/Resolved]
  - Syncope [Recovered/Resolved]
  - Pain [Unknown]
  - Vision blurred [Recovered/Resolved]
  - Tachycardia [Recovered/Resolved]
  - Amnesia [Recovered/Resolved]
  - Neck pain [Recovered/Resolved]
  - Chest pain [Recovered/Resolved]
  - Abdominal pain [Unknown]
  - Headache [Unknown]
  - Pyrexia [Unknown]
  - Fatigue [Not Recovered/Not Resolved]
  - Asthenia [Unknown]
  - Dizziness [Unknown]
